FAERS Safety Report 23104219 (Version 1)
Quarter: 2023Q4

REPORT INFORMATION
  Report Type: Spontaneous
  Country: US (occurrence: US)
  Receive Date: 20231025
  Receipt Date: 20231025
  Transmission Date: 20240110
  Serious: Yes (Other)
  Sender: FDA-Public Use
  Company Number: US-BRISTOL-MYERS SQUIBB COMPANY-2023-151030

PATIENT
  Age: 20 Year
  Sex: Male
  Weight: 97.8 kg

DRUGS (5)
  1. OPDIVO [Suspect]
     Active Substance: NIVOLUMAB
     Indication: Sarcoma
     Dosage: FREQUENCY: EVERY 3 WEEKS TIMES 4 DOSES
     Route: 042
     Dates: start: 20230921, end: 20230921
  2. YERVOY [Suspect]
     Active Substance: IPILIMUMAB
     Indication: Sarcoma
     Dosage: FREQUENCY: EVERY 3 WEEKS TIMES 4 DOSES
     Route: 042
     Dates: start: 20230921, end: 20230921
  3. ATORVASTATIN [Concomitant]
     Active Substance: ATORVASTATIN
  4. TYLENOL [Concomitant]
     Active Substance: ACETAMINOPHEN
  5. IBUPROFEN [Concomitant]
     Active Substance: IBUPROFEN

REACTIONS (2)
  - Malignant neoplasm progression [Unknown]
  - Off label use [Unknown]
